FAERS Safety Report 5647106-7 (Version None)
Quarter: 2008Q1

REPORT INFORMATION
  Report Type: 
  Country: None (occurrence: None)
  Receive Date: 20080131
  Receipt Date: 20071207
  Transmission Date: 20080703
  Serious: No
  Sender: FDA-Public Use
  Company Number: 163-21880-07120479

PATIENT
  Age: 65 Year
  Sex: Female

DRUGS (6)
  1. REVLIMID [Suspect]
     Indication: MYELODYSPLASTIC SYNDROME
     Dosage: 10 MG, 1 IN 1 D, ORAL
     Route: 048
     Dates: start: 20071016
  2. LISINOPRIL [Concomitant]
  3. HYDROCHLOROT (TABLETS) [Concomitant]
  4. LORTAB [Concomitant]
  5. ASPIR-LOW (TABLETS) [Concomitant]
  6. MED [Concomitant]

REACTIONS (1)
  - EAR PAIN [None]
